FAERS Safety Report 6152150-X (Version None)
Quarter: 2009Q2

REPORT INFORMATION
  Report Type: 
  Country: None (occurrence: None)
  Receive Date: 20090409
  Receipt Date: 20090409
  Transmission Date: 20091009
  Serious: No
  Sender: FDA-Public Use
  Company Number: None

PATIENT
  Age: 36 Year
  Sex: Female
  Weight: 81.6475 kg

DRUGS (7)
  1. DEXTROAMPHETAMINE SULFATE [Suspect]
     Indication: NARCOLEPSY
     Dosage: 20 MG 3 TIMES DAILY PO
     Route: 048
     Dates: start: 20050301, end: 20050401
  2. DEXTROAMPHETAMINE SULFATE [Suspect]
     Indication: NARCOLEPSY
     Dosage: 20 MG 3 TIMES DAILY PO
     Route: 048
     Dates: start: 20090301, end: 20090401
  3. TOPROL-XL [Concomitant]
  4. LEVOXYL [Concomitant]
  5. PREVICID [Concomitant]
  6. YASMIN [Concomitant]
  7. PERCOCET [Concomitant]

REACTIONS (8)
  - ANXIETY [None]
  - BLOOD PRESSURE ABNORMAL [None]
  - BLOOD PRESSURE INCREASED [None]
  - DRUG INEFFECTIVE [None]
  - EMOTIONAL DISTRESS [None]
  - PALPITATIONS [None]
  - PRODUCT QUALITY ISSUE [None]
  - SOMNOLENCE [None]
